FAERS Safety Report 15920524 (Version 4)
Quarter: 2019Q2

REPORT INFORMATION
  Report Type: Spontaneous
  Country: US (occurrence: US)
  Receive Date: 20190205
  Receipt Date: 20190404
  Transmission Date: 20190711
  Serious: Yes (Death, Other)
  Sender: FDA-Public Use
  Company Number: US-GLAXOSMITHKLINE-US2019015686

PATIENT
  Age: 81 Year
  Sex: Male
  Weight: 83.45 kg

DRUGS (2)
  1. TRELEGY ELLIPTA [Suspect]
     Active Substance: FLUTICASONE FUROATE\UMECLIDINIUM BROMIDE\VILANTEROL TRIFENATATE
     Indication: ASTHMA
  2. TRELEGY ELLIPTA [Suspect]
     Active Substance: FLUTICASONE FUROATE\UMECLIDINIUM BROMIDE\VILANTEROL TRIFENATATE
     Indication: CHRONIC OBSTRUCTIVE PULMONARY DISEASE
     Dosage: 1 PUFF(S), 1D
     Route: 055
     Dates: start: 20190119, end: 20190218

REACTIONS (8)
  - Nocturnal dyspnoea [Not Recovered/Not Resolved]
  - Dizziness [Recovered/Resolved]
  - Urine flow decreased [Not Recovered/Not Resolved]
  - Syncope [Recovered/Resolved]
  - Oxygen therapy [Unknown]
  - Product use in unapproved indication [Unknown]
  - Wrong technique in device usage process [Recovered/Resolved]
  - Death [Fatal]

NARRATIVE: CASE EVENT DATE: 201901
